FAERS Safety Report 11538665 (Version 2)
Quarter: 2018Q3

REPORT INFORMATION
  Report Type: Spontaneous
  Country: US (occurrence: US)
  Receive Date: 20150923
  Receipt Date: 20180827
  Transmission Date: 20181010
  Serious: No
  Sender: FDA-Public Use
  Company Number: US-ASTRAZENECA-2015SE89086

PATIENT
  Sex: Female
  Weight: 71.7 kg

DRUGS (11)
  1. BYETTA [Suspect]
     Active Substance: EXENATIDE
     Indication: TYPE 2 DIABETES MELLITUS
     Route: 058
  2. VITAMIN D3 [Concomitant]
     Active Substance: CHOLECALCIFEROL
     Route: 048
  3. BYETTA [Suspect]
     Active Substance: EXENATIDE
     Indication: TYPE 2 DIABETES MELLITUS
     Route: 058
  4. BYETTA [Suspect]
     Active Substance: EXENATIDE
     Indication: TYPE 2 DIABETES MELLITUS
     Route: 058
  5. BIOTIN [Concomitant]
     Active Substance: BIOTIN
     Route: 048
  6. COQ10 [Concomitant]
     Active Substance: UBIDECARENONE
     Route: 048
  7. AMLODIPINE [Concomitant]
     Active Substance: AMLODIPINE BESYLATE
     Route: 048
  8. BENICAR [Concomitant]
     Active Substance: OLMESARTAN MEDOXOMIL
     Indication: BLOOD PRESSURE ABNORMAL
     Route: 048
  9. LIVALO [Concomitant]
     Active Substance: PITAVASTATIN CALCIUM
     Indication: BLOOD CHOLESTEROL ABNORMAL
     Route: 048
  10. VITAMIN C [Concomitant]
     Active Substance: ASCORBIC ACID
     Route: 048
  11. LOW?DOSE ASPIRIN [Concomitant]
     Active Substance: ASPIRIN
     Route: 048

REACTIONS (6)
  - Back disorder [Unknown]
  - Blood glucose decreased [Recovered/Resolved]
  - Malaise [Unknown]
  - Pain [Unknown]
  - Glycosylated haemoglobin increased [Unknown]
  - Nausea [Not Recovered/Not Resolved]
